FAERS Safety Report 19923089 (Version 1)
Quarter: 2021Q4

REPORT INFORMATION
  Report Type: Spontaneous
  Country: CA (occurrence: CA)
  Receive Date: 20211005
  Receipt Date: 20211005
  Transmission Date: 20220303
  Serious: Yes (Other)
  Sender: FDA-Public Use
  Company Number: CA-TEVA-2021-CA-1961407

PATIENT
  Age: 76 Year
  Sex: Female

DRUGS (9)
  1. METHOTREXATE [Suspect]
     Active Substance: METHOTREXATE
     Indication: Product used for unknown indication
     Route: 065
  2. CANDESARTAN [Concomitant]
     Active Substance: CANDESARTAN
     Route: 065
  3. DESOXIMETASONE [Concomitant]
     Active Substance: DESOXIMETASONE
     Indication: Pain
     Route: 030
  4. DESOXIMETASONE [Concomitant]
     Active Substance: DESOXIMETASONE
     Indication: Insomnia
  5. ESTRADIOL [Concomitant]
     Active Substance: ESTRADIOL
     Route: 065
  6. HYDROXYCHLOROQUINE [Concomitant]
     Active Substance: HYDROXYCHLOROQUINE
     Route: 065
  7. LEFLUNOMIDE [Concomitant]
     Active Substance: LEFLUNOMIDE
     Route: 065
  8. PANTOPRAZOLE [Concomitant]
     Active Substance: PANTOPRAZOLE
     Route: 065
  9. RIFAMPIN [Concomitant]
     Active Substance: RIFAMPIN
     Indication: Latent tuberculosis
     Route: 065

REACTIONS (5)
  - Fall [Unknown]
  - Fatigue [Unknown]
  - Somnolence [Unknown]
  - Vertigo [Unknown]
  - Drug intolerance [Unknown]
